FAERS Safety Report 6299575-X (Version None)
Quarter: 2009Q3

REPORT INFORMATION
  Report Type: 
  Country: None (occurrence: None)
  Receive Date: 20090806
  Receipt Date: 20090805
  Transmission Date: 20100115
  Serious: Yes (Death, Life-Threatening)
  Sender: FDA-Public Use
  Company Number: JP-BAYER-200911208BYL

PATIENT
  Age: 36 Year
  Sex: Female
  Weight: 54 kg

DRUGS (7)
  1. FLUDARA [Suspect]
     Indication: ACUTE MYELOID LEUKAEMIA
     Dosage: AS USED: 45 MG  UNIT DOSE: 50 MG
     Route: 042
     Dates: start: 20081230, end: 20090104
  2. CYCLOSPORINE [Suspect]
     Indication: PROPHYLAXIS AGAINST GRAFT VERSUS HOST DISEASE
     Route: 042
     Dates: start: 20090105, end: 20090223
  3. TARGOCID [Suspect]
     Indication: PNEUMONIA
     Route: 042
     Dates: start: 20081230, end: 20090214
  4. MEROPEN [Suspect]
     Indication: PNEUMONIA
     Dosage: AS USED: 2 G
     Route: 042
     Dates: start: 20081230, end: 20090216
  5. BUSULFAN [Concomitant]
     Indication: ACUTE MYELOID LEUKAEMIA
     Dosage: AS USED: 180 MG
     Route: 042
     Dates: start: 20081231, end: 20090101
  6. CONCENTRATED RED CELLS [Concomitant]
     Indication: PACKED RED BLOOD CELL TRANSFUSION
     Route: 042
     Dates: start: 20081230, end: 20090223
  7. PLATELET CONCENTRATE [Concomitant]
     Indication: PLATELET TRANSFUSION
     Route: 042
     Dates: start: 20081230, end: 20090223

REACTIONS (2)
  - RENAL FAILURE ACUTE [None]
  - SEPSIS [None]
